FAERS Safety Report 10870058 (Version 3)
Quarter: 2015Q1

REPORT INFORMATION
  Report Type: Spontaneous
  Country: JP (occurrence: JP)
  Receive Date: 20150226
  Receipt Date: 20150318
  Transmission Date: 20150721
  Serious: Yes (Hospitalization)
  Sender: FDA-Public Use
  Company Number: JP-EISAI MEDICAL RESEARCH-EC-2015-004359

PATIENT
  Age: 46 Year
  Sex: Male

DRUGS (23)
  1. EXCEGRAN [Suspect]
     Active Substance: ZONISAMIDE
     Route: 048
     Dates: start: 20150130, end: 20150202
  2. EXCEGRAN [Suspect]
     Active Substance: ZONISAMIDE
     Indication: EPILEPSY
     Route: 048
     Dates: start: 20150123, end: 20150129
  3. VANCOMYCIN HYDROCHLORIDE. [Suspect]
     Active Substance: VANCOMYCIN HYDROCHLORIDE
     Dosage: 3 GRAM/DAY
     Route: 041
     Dates: start: 20150130, end: 20150202
  4. GASMOTIN [Concomitant]
     Active Substance: MOSAPRIDE CITRATE
     Indication: GASTRIC ULCER
     Dosage: 15 MG/DAY
     Route: 048
     Dates: start: 20150123, end: 20150202
  5. FOSPHENYTOIN [Concomitant]
     Active Substance: FOSPHENYTOIN\FOSPHENYTOIN SODIUM
     Indication: EPILEPSY
     Dosage: 750 MG/DAY
     Route: 041
     Dates: start: 20150126, end: 20150126
  6. TAKEPRON [Concomitant]
     Active Substance: LANSOPRAZOLE
     Indication: GASTRIC ULCER
     Dosage: 60 MG/DAY
     Route: 041
     Dates: start: 20150110, end: 20150116
  7. PISULCIN [Concomitant]
     Active Substance: AMPICILLIN SODIUM\SULBACTAM SODIUM
     Indication: PNEUMONIA ASPIRATION
     Dosage: 60 MG/DAY
     Route: 041
     Dates: start: 20150112, end: 20150115
  8. NOBELBAR [Concomitant]
     Active Substance: PHENOBARBITAL SODIUM
     Dosage: 500 MG/DAY
     Route: 041
     Dates: start: 20150116, end: 20150116
  9. LANSOPRAZOLE OD [Concomitant]
     Active Substance: LANSOPRAZOLE
     Indication: GASTRIC ULCER
     Dosage: 30 MG/DAY
     Route: 048
     Dates: start: 20150117, end: 20150202
  10. NOBELBAR [Concomitant]
     Active Substance: PHENOBARBITAL SODIUM
     Indication: EPILEPSY
     Dosage: 750 MG/DAY
     Route: 041
     Dates: start: 20150115, end: 20150115
  11. PHENOBARBITAL. [Suspect]
     Active Substance: PHENOBARBITAL
     Indication: EPILEPSY
     Dosage: 198 MG/DAY
     Route: 048
     Dates: start: 20150117, end: 20150123
  12. KEPPRA [Suspect]
     Active Substance: LEVETIRACETAM
     Indication: EPILEPSY
     Dosage: 1000 MG/DAY
     Route: 048
     Dates: start: 20150115, end: 20150122
  13. MEROPENEM HYDRATE [Concomitant]
     Active Substance: MEROPENEM
     Indication: PNEUMONIA ASPIRATION
     Dosage: 1.5 GRAM/DAY
     Route: 041
     Dates: start: 20150115, end: 20150123
  14. SODIUM VALPROATE [Concomitant]
     Active Substance: VALPROATE SODIUM
     Indication: EPILEPSY
     Dosage: 1200 MG/DAY
     Route: 048
     Dates: start: 20150116, end: 20150119
  15. AMBROXOL HYDROCHLORIDE [Concomitant]
     Active Substance: AMBROXOL HYDROCHLORIDE
     Indication: BRONCHITIS
     Dosage: 15 MILLILITRE/DAY
     Route: 048
     Dates: start: 20150129, end: 20150202
  16. KEPPRA [Suspect]
     Active Substance: LEVETIRACETAM
     Dosage: 2000 MG/DAY
     Route: 048
     Dates: start: 20150123, end: 20150202
  17. INTRALIPOS [Concomitant]
     Active Substance: SOYBEAN OIL
     Indication: NUTRITIONAL SUPPLEMENTATION
     Dosage: 100 MILITRE/DAY
     Route: 041
     Dates: start: 20090119
  18. ALEVIATIN [Concomitant]
     Active Substance: PHENYTOIN SODIUM
     Indication: EPILEPSY
     Dosage: 250 MG/DAY
     Route: 041
     Dates: start: 20150109, end: 20150114
  19. FOSPHENYTOIN [Concomitant]
     Active Substance: FOSPHENYTOIN\FOSPHENYTOIN SODIUM
     Dosage: 375 MG/DAY
     Route: 041
     Dates: start: 20150127, end: 20150127
  20. VANCOMYCIN HYDROCHLORIDE. [Suspect]
     Active Substance: VANCOMYCIN HYDROCHLORIDE
     Indication: PNEUMONIA
     Dosage: 2 GRAM/DAY
     Route: 041
     Dates: start: 20150128, end: 20150130
  21. CEFTRIAXONE SODIUM HYDRATE [Concomitant]
     Active Substance: CEFTRIAXONE SODIUM
     Indication: PNEUMONIA
     Dosage: 4 GRAM/DAY
     Route: 041
     Dates: start: 20150126, end: 20150129
  22. SELENICA-R [Concomitant]
     Active Substance: SELENIUM
     Indication: EPILEPSY
     Dosage: 800 MG/DAY
     Route: 048
     Dates: start: 20150109, end: 20150115
  23. SODIUM VALPROATE [Concomitant]
     Active Substance: VALPROATE SODIUM
     Dosage: 500 MG/DAY
     Route: 041
     Dates: start: 20150116, end: 20150116

REACTIONS (1)
  - Neutropenia [Recovering/Resolving]

NARRATIVE: CASE EVENT DATE: 20150130
